FAERS Safety Report 14089769 (Version 2)
Quarter: 2018Q1

REPORT INFORMATION
  Report Type: Spontaneous
  Country: FR (occurrence: FR)
  Receive Date: 20171014
  Receipt Date: 20180207
  Transmission Date: 20180508
  Serious: Yes (Other)
  Sender: FDA-Public Use
  Company Number: FR-MERCK KGAA-2030137

PATIENT
  Age: 74 Year
  Sex: Female

DRUGS (7)
  1. TEMERIT [Concomitant]
     Active Substance: NEBIVOLOL
  2. NOVOTHYROX [Suspect]
     Active Substance: LEVOTHYROXINE SODIUM
     Dates: start: 201706, end: 2017
  3. BISOCE [Concomitant]
     Active Substance: BISOPROLOL
  4. ASPIRINE PROTECT [Concomitant]
     Active Substance: ASPIRIN
  5. COTAREG(CO-DIOVAN) [Concomitant]
  6. NOVOTHYROX [Suspect]
     Active Substance: LEVOTHYROXINE SODIUM
     Indication: AUTOIMMUNE THYROIDITIS
     Dates: start: 201706
  7. ELIQUIS [Concomitant]
     Active Substance: APIXABAN

REACTIONS (10)
  - Headache [Recovered/Resolved]
  - Vertigo [Recovered/Resolved]
  - Blood thyroid stimulating hormone abnormal [Recovered/Resolved]
  - Somnolence [Recovered/Resolved]
  - C-reactive protein increased [Recovered/Resolved]
  - Vomiting [Recovered/Resolved]
  - Blood pressure increased [Recovered/Resolved]
  - Diarrhoea [Recovered/Resolved]
  - Arrhythmia [Recovered/Resolved]
  - Faeces discoloured [Recovered/Resolved]

NARRATIVE: CASE EVENT DATE: 2017
